FAERS Safety Report 16045010 (Version 1)
Quarter: 2019Q1

REPORT INFORMATION
  Report Type: Spontaneous
  Country: FR (occurrence: FR)
  Receive Date: 20190307
  Receipt Date: 20190307
  Transmission Date: 20190418
  Serious: Yes (Hospitalization, Congenital Anomaly)
  Sender: FDA-Public Use
  Company Number: FR-ROCHE-2274713

PATIENT
  Sex: Female
  Weight: 3.6 kg

DRUGS (3)
  1. RIVOTRIL [Suspect]
     Active Substance: CLONAZEPAM
     Indication: PRODUCT USED FOR UNKNOWN INDICATION
     Dosage: UNK
     Route: 064
     Dates: start: 20050310, end: 20051121
  2. DEPAKINE CHRONO [Suspect]
     Active Substance: VALPROATE SODIUM
     Indication: PRODUCT USED FOR UNKNOWN INDICATION
     Dosage: 500 MG, QD
     Route: 064
     Dates: start: 20050310, end: 20051121
  3. LAMICTAL [Suspect]
     Active Substance: LAMOTRIGINE
     Indication: PRODUCT USED FOR UNKNOWN INDICATION
     Dosage: UNK
     Route: 064
     Dates: start: 20050310, end: 20051121

REACTIONS (17)
  - Urogenital disorder [Unknown]
  - Ear infection [Unknown]
  - Speech disorder developmental [Unknown]
  - Abnormal behaviour [Unknown]
  - Psychomotor skills impaired [Unknown]
  - Learning disorder [Unknown]
  - Conjunctivitis [Unknown]
  - Weaning failure [Recovered/Resolved]
  - Congenital musculoskeletal anomaly [Unknown]
  - Precocious puberty [Recovering/Resolving]
  - Hirsutism [Recovering/Resolving]
  - Cognitive disorder [Unknown]
  - Foetal exposure during pregnancy [Unknown]
  - Oesophageal disorder [Unknown]
  - Drug withdrawal syndrome [Unknown]
  - Developmental delay [Unknown]
  - Constipation [Unknown]

NARRATIVE: CASE EVENT DATE: 20051121
